FAERS Safety Report 5207943-X (Version None)
Quarter: 2007Q1

REPORT INFORMATION
  Report Type: 
  Country: None (occurrence: None)
  Receive Date: 20070115
  Receipt Date: 20070105
  Transmission Date: 20070707
  Serious: Yes (Other)
  Sender: FDA-Public Use
  Company Number: US-ELI_LILLY_AND_COMPANY-US200606000819

PATIENT
  Age: 30 Year
  Sex: Male
  Weight: 108.84 kg

DRUGS (10)
  1. ZYPREXA [Suspect]
     Dosage: 10 MG, UNK
     Dates: start: 19960101
  2. ZYPREXA [Suspect]
     Dosage: 20 MG, UNK
     Dates: start: 19960101
  3. ZYPREXA [Suspect]
     Dosage: 5 MG, UNK
     Dates: start: 20060101
  4. ZYPREXA [Suspect]
     Dosage: 30 MG, UNK
     Dates: start: 20060101
  5. RISPERIDONE [Concomitant]
     Dates: start: 20060201
  6. ZIPRASIDONE HCL [Concomitant]
     Dates: start: 20050101
  7. HALOPERIDOL [Concomitant]
     Dates: start: 20060101
  8. DEPAKOTE [Concomitant]
     Dates: start: 20050101, end: 20060101
  9. LITHIUM CARBONATE [Concomitant]
     Dates: start: 19920101, end: 20040101
  10. BUPROPION HCL [Concomitant]
     Dates: start: 20050101

REACTIONS (7)
  - DIABETES MELLITUS [None]
  - DIABETIC NEUROPATHY [None]
  - HEPATIC CIRRHOSIS [None]
  - HYPERGLYCAEMIA [None]
  - HYPERTENSION [None]
  - PRESCRIBED OVERDOSE [None]
  - WEIGHT INCREASED [None]
